FAERS Safety Report 8432418-4 (Version None)
Quarter: 2012Q2

REPORT INFORMATION
  Report Type: 
  Country: None (occurrence: None)
  Receive Date: 20120613
  Receipt Date: 20120529
  Transmission Date: 20120825
  Serious: Yes (Hospitalization, Congenital Anomaly)
  Sender: FDA-Public Use
  Company Number: DK-PFIZER INC-2012132098

PATIENT
  Age: 1 Year
  Sex: Male

DRUGS (1)
  1. CYTOTEC [Suspect]
     Indication: LABOUR INDUCTION
     Dosage: 25 MG X 3 AND 50 MG X 1
     Route: 064
     Dates: start: 20100525, end: 20100527

REACTIONS (2)
  - BLOOD PH INCREASED [None]
  - FOETAL EXPOSURE DURING PREGNANCY [None]
